FAERS Safety Report 12290194 (Version 1)
Quarter: 2016Q2

REPORT INFORMATION
  Report Type: Spontaneous
  Country: US (occurrence: None)
  Receive Date: 20160420
  Receipt Date: 20160420
  Transmission Date: 20160815
  Serious: Yes (Hospitalization)
  Sender: FDA-Public Use
  Company Number: None

PATIENT
  Age: 46 Year
  Sex: Female
  Weight: 91.63 kg

DRUGS (12)
  1. FISH OIL [Concomitant]
     Active Substance: FISH OIL
  2. CALCIUM CARBONATE. [Concomitant]
     Active Substance: CALCIUM CARBONATE
  3. CYANOCOBALAMIN. [Concomitant]
     Active Substance: CYANOCOBALAMIN
  4. ALEVE [Concomitant]
     Active Substance: NAPROXEN SODIUM
  5. INTERFERON GAMMA 1B [Suspect]
     Active Substance: INTERFERON GAMMA-1B
     Indication: BREAST CANCER METASTATIC
     Dates: start: 20160325, end: 20160416
  6. NIVOLUMAB [Suspect]
     Active Substance: NIVOLUMAB
     Indication: BREAST CANCER METASTATIC
     Dates: start: 20160404
  7. VITAMIN D [Concomitant]
     Active Substance: CHOLECALCIFEROL
  8. MULTIVITAMIN [Concomitant]
     Active Substance: VITAMINS
  9. DURAGESIC [Concomitant]
     Active Substance: FENTANYL
  10. NEURONTIN [Concomitant]
     Active Substance: GABAPENTIN
  11. TYLENOL [Concomitant]
     Active Substance: ACETAMINOPHEN
  12. OXYCODONE [Concomitant]
     Active Substance: OXYCODONE

REACTIONS (6)
  - Dyspnoea exertional [None]
  - Lymphoedema [None]
  - Fatigue [None]
  - Condition aggravated [None]
  - Asthenia [None]
  - Oedema [None]

NARRATIVE: CASE EVENT DATE: 20160418
